FAERS Safety Report 20898477 (Version 1)
Quarter: 2022Q2

REPORT INFORMATION
  Report Type: Report from Study
  Country: BR (occurrence: BR)
  Receive Date: 20220601
  Receipt Date: 20220601
  Transmission Date: 20220720
  Serious: Yes (Other)
  Sender: FDA-Public Use
  Company Number: BR-ABBVIE-22K-020-4413075-00

PATIENT

DRUGS (3)
  1. ADALIMUMAB [Suspect]
     Active Substance: ADALIMUMAB
     Indication: Rheumatoid arthritis
     Route: 058
  2. CHLOROQUINE [Concomitant]
     Active Substance: CHLOROQUINE
     Indication: Product used for unknown indication
  3. METHOTREXATE [Concomitant]
     Active Substance: METHOTREXATE
     Indication: Product used for unknown indication

REACTIONS (10)
  - Renal failure [Unknown]
  - Gastric disorder [Unknown]
  - Osteoarthritis [Unknown]
  - Patellofemoral pain syndrome [Unknown]
  - Spinal disorder [Unknown]
  - Self esteem decreased [Unknown]
  - Loss of personal independence in daily activities [Unknown]
  - Impaired work ability [Unknown]
  - Pain [Unknown]
  - Fibromyalgia [Unknown]
